FAERS Safety Report 5377926-8 (Version None)
Quarter: 2007Q3

REPORT INFORMATION
  Report Type: 
  Country: None (occurrence: None)
  Receive Date: 20070703
  Receipt Date: 20070626
  Transmission Date: 20080115
  Serious: Yes (Life-Threatening)
  Sender: FDA-Public Use
  Company Number: JP-MERCK-0706USA05389

PATIENT
  Age: 76 Year
  Sex: Male

DRUGS (5)
  1. HYZAAR [Suspect]
     Indication: HYPERTENSION
     Route: 048
     Dates: end: 20070609
  2. ADALAT [Concomitant]
     Indication: HYPERTENSION
     Route: 048
     Dates: end: 20070609
  3. DILTIAZEM HYDROCHLORIDE [Concomitant]
     Route: 065
     Dates: end: 20070609
  4. ASPENON [Concomitant]
     Indication: ARRHYTHMIA
     Route: 065
     Dates: end: 20070609
  5. ASPIRIN [Concomitant]
     Indication: THROMBOSIS PROPHYLAXIS
     Route: 048

REACTIONS (5)
  - BRADYCARDIA [None]
  - CARDIAC ARREST [None]
  - CHEST PAIN [None]
  - HYPERKALAEMIA [None]
  - SINUS DISORDER [None]
